FAERS Safety Report 18277093 (Version 1)
Quarter: 2020Q3

REPORT INFORMATION
  Report Type: Spontaneous
  Country: US (occurrence: US)
  Receive Date: 20200917
  Receipt Date: 20200917
  Transmission Date: 20201103
  Serious: No
  Sender: FDA-Public Use
  Company Number: US-ALLERGAN-2021724US

PATIENT
  Age: 67 Year
  Sex: Female
  Weight: 131.54 kg

DRUGS (1)
  1. SUCRALFATE ? BP [Suspect]
     Active Substance: SUCRALFATE
     Indication: GASTRIC DISORDER
     Dosage: 1 G, BID (ON EMPTY STOMACH)
     Route: 048
     Dates: start: 202004

REACTIONS (3)
  - Product use complaint [Unknown]
  - Choking [Unknown]
  - Product label issue [Unknown]

NARRATIVE: CASE EVENT DATE: 202004
